FAERS Safety Report 25539100 (Version 1)
Quarter: 2025Q3

REPORT INFORMATION
  Report Type: Spontaneous
  Country: US (occurrence: US)
  Receive Date: 20250710
  Receipt Date: 20250710
  Transmission Date: 20251021
  Serious: Yes (Other)
  Sender: AUROBINDO
  Company Number: US-MYLANLABS-2019M1099481

PATIENT
  Age: 76 Year
  Sex: Male

DRUGS (4)
  1. FULVESTRANT [Suspect]
     Active Substance: FULVESTRANT
     Indication: Breast cancer metastatic
     Route: 065
  2. LEUPROLIDE [Suspect]
     Active Substance: LEUPROLIDE
     Indication: Breast cancer metastatic
     Route: 065
  3. PALBOCICLIB [Suspect]
     Active Substance: PALBOCICLIB
     Indication: Breast cancer metastatic
     Route: 065
  4. ZOMETA [Concomitant]
     Active Substance: ZOLEDRONIC ACID
     Indication: Breast cancer metastatic
     Route: 065

REACTIONS (1)
  - Neutropenia [Unknown]
